FAERS Safety Report 5074134-5 (Version None)
Quarter: 2006Q3

REPORT INFORMATION
  Report Type: 
  Country: None (occurrence: None)
  Receive Date: 20060803
  Receipt Date: 20060724
  Transmission Date: 20061208
  Serious: Yes (Other)
  Sender: FDA-Public Use
  Company Number: 2006081770

PATIENT
  Age: 58 Year
  Sex: Female
  Weight: 90 kg

DRUGS (13)
  1. LYRICA [Suspect]
     Indication: BACK PAIN
     Dosage: 300 MG (100 MG, 3 IN 1 D), ORAL
     Route: 048
     Dates: start: 20050701, end: 20060720
  2. KLIOFEM (ESTRADIOL, NOETHISTERONE ACETATE) [Concomitant]
  3. ACETAMINOPHEN [Concomitant]
  4. LACTULOSE [Concomitant]
  5. METHADONE HCL [Concomitant]
  6. AMITRIPTYLINE (AMITRIPTYLINE) [Concomitant]
  7. QUININE SULFATE [Concomitant]
  8. BACLOFEN [Concomitant]
  9. CELECOXIB (CELECOXIB) [Concomitant]
  10. RABEPRAZOLE (RABEPRAZOLE) [Concomitant]
  11. CLOMETHIAZOLE (CLOMETHIAZOLE) [Concomitant]
  12. BETAHISTINE (BETAHISTINE) [Concomitant]
  13. TRAMADOL HCL [Concomitant]

REACTIONS (2)
  - FALL [None]
  - SLEEP WALKING [None]
